FAERS Safety Report 23148299 (Version 1)
Quarter: 2023Q4

REPORT INFORMATION
  Report Type: Other
  Country: FR (occurrence: FR)
  Receive Date: 20231106
  Receipt Date: 20231106
  Transmission Date: 20240110
  Serious: Yes (Death, Hospitalization)
  Sender: FDA-Public Use
  Company Number: None

PATIENT

DRUGS (2)
  1. DULOXETINE [Interacting]
     Active Substance: DULOXETINE
     Indication: Mixed anxiety and depressive disorder
     Dosage: 60 MILLIGRAM, QD
     Route: 048
  2. ELIQUIS [Interacting]
     Active Substance: APIXABAN
     Indication: Atrial fibrillation
     Dosage: 2 DOSAGE FORM, QD
     Route: 048
     Dates: end: 20201107

REACTIONS (2)
  - Haemorrhagic stroke [Fatal]
  - Drug interaction [Recovered/Resolved]

NARRATIVE: CASE EVENT DATE: 20201107
